FAERS Safety Report 14115034 (Version 2)
Quarter: 2018Q3

REPORT INFORMATION
  Report Type: Spontaneous
  Country: US (occurrence: US)
  Receive Date: 20171023
  Receipt Date: 20180924
  Transmission Date: 20181010
  Serious: No
  Sender: FDA-Public Use
  Company Number: US-ALLERGAN-1723980US

PATIENT
  Sex: Male
  Weight: 89.8 kg

DRUGS (1)
  1. LINZESS [Suspect]
     Active Substance: LINACLOTIDE
     Indication: IRRITABLE BOWEL SYNDROME
     Dosage: 290 ?G, QAM
     Route: 048
     Dates: start: 2015

REACTIONS (5)
  - Diarrhoea [Unknown]
  - Hernia [Unknown]
  - Abdominal pain upper [Unknown]
  - Back pain [Unknown]
  - Off label use [Unknown]
